FAERS Safety Report 11106189 (Version 1)
Quarter: 2015Q2

REPORT INFORMATION
  Report Type: Spontaneous
  Country: IS (occurrence: IS)
  Receive Date: 20150512
  Receipt Date: 20150512
  Transmission Date: 20150821
  Serious: Yes (Other)
  Sender: FDA-Public Use
  Company Number: IS-JNJFOC-20150423759

PATIENT

DRUGS (1)
  1. HYDROCORTISONE. [Suspect]
     Active Substance: HYDROCORTISONE
     Indication: PRODUCT USED FOR UNKNOWN INDICATION
     Route: 065

REACTIONS (9)
  - Application site reaction [Unknown]
  - Telangiectasia [Unknown]
  - Ependymoma [Unknown]
  - Viral infection [Unknown]
  - Eczema infected [Unknown]
  - Impetigo [Unknown]
  - Bronchitis [Unknown]
  - Nasopharyngitis [Unknown]
  - Bacterial infection [Unknown]
